FAERS Safety Report 9600265 (Version 1)
Quarter: 2013Q4

REPORT INFORMATION
  Report Type: Spontaneous
  Country: US (occurrence: US)
  Receive Date: 20131004
  Receipt Date: 20131004
  Transmission Date: 20140711
  Serious: No
  Sender: FDA-Public Use
  Company Number: US-AMGEN-USASP2013033107

PATIENT
  Age: 20 Year
  Sex: Female
  Weight: 58.96 kg

DRUGS (4)
  1. ENBREL [Suspect]
     Indication: PRODUCT USED FOR UNKNOWN INDICATION
     Dosage: 50 MG, TWICE A WEEK
     Route: 058
     Dates: start: 201302
  2. ABILIFY [Concomitant]
     Dosage: 15 MG, UNK
  3. LEXAPRO [Concomitant]
     Dosage: 5 MG, UNK
  4. VIORELE [Concomitant]
     Dosage: UNK

REACTIONS (1)
  - Drug ineffective [Unknown]
